FAERS Safety Report 4359225-6 (Version None)
Quarter: 2004Q2

REPORT INFORMATION
  Report Type: 
  Country: None (occurrence: None)
  Receive Date: 20040512
  Receipt Date: 20040505
  Transmission Date: 20050107
  Serious: Yes (Death)
  Sender: FDA-Public Use
  Company Number: US-JNJFOC-20040403549

PATIENT
  Age: 44 Year
  Sex: Female
  Weight: 88.905 kg

DRUGS (6)
  1. DURAGESIC [Suspect]
     Indication: DRUG USE FOR UNKNOWN INDICATION
     Dosage: TRANSDERMAL
     Route: 062
  2. AMPHETAMINES (AMPHETAMINES) [Suspect]
     Indication: DRUG USE FOR UNKNOWN INDICATION
  3. CYCLOBENZAPRINE (CYCLOBENZAPRINE) [Suspect]
  4. ANTIDEPRESSANT TRICYCLIC (TRICYCLIC ANTIDEPRESSANTS) [Concomitant]
  5. DIAZEPAM [Concomitant]
  6. SALICYLATE (SALICYLATES) [Concomitant]

REACTIONS (11)
  - ACCIDENT [None]
  - BRONCHOPNEUMONIA [None]
  - COMA [None]
  - CORONARY ARTERY ATHEROSCLEROSIS [None]
  - DRUG TOXICITY [None]
  - EXCORIATION [None]
  - FALL [None]
  - HEPATIC STEATOSIS [None]
  - OEDEMA PERIPHERAL [None]
  - PULMONARY CONGESTION [None]
  - PULMONARY OEDEMA [None]
